FAERS Safety Report 24806734 (Version 1)
Quarter: 2025Q1

REPORT INFORMATION
  Report Type: Spontaneous
  Country: IR (occurrence: IR)
  Receive Date: 20250104
  Receipt Date: 20250104
  Transmission Date: 20250409
  Serious: Yes (Death, Life-Threatening, Hospitalization)
  Sender: MACLEODS
  Company Number: IR-MACLEODS PHARMA-MAC2024050878

PATIENT

DRUGS (1)
  1. CLOBETASOL PROPIONATE [Suspect]
     Active Substance: CLOBETASOL PROPIONATE
     Indication: Psoriasis
     Dosage: ON A DAILY BASIS OVER THE COURSE OF A YEAR
     Route: 061

REACTIONS (7)
  - Pseudo Cushing^s syndrome [Fatal]
  - Pyrexia [Fatal]
  - Vomiting [Fatal]
  - Diarrhoea [Fatal]
  - Metabolic dysfunction-associated steatohepatitis [Fatal]
  - Hypothalamic pituitary adrenal axis suppression [Fatal]
  - Intentional product misuse to child [Fatal]
